FAERS Safety Report 9071306 (Version 1)
Quarter: 2013Q1

REPORT INFORMATION
  Report Type: Spontaneous
  Country: US (occurrence: US)
  Receive Date: 20130206
  Receipt Date: 20130206
  Transmission Date: 20140127
  Serious: No
  Sender: FDA-Public Use
  Company Number: US-ALLERGAN-1210169US

PATIENT
  Age: 57 Year
  Sex: Female

DRUGS (6)
  1. RESTASIS? [Suspect]
     Indication: DRY EYE
     Dosage: 2 GTT, UNK
     Route: 047
  2. REFRESH TEARS [Concomitant]
     Indication: DRY EYE
  3. REFRESH CELLUVISC SOLUTION [Concomitant]
     Indication: DRY EYE
  4. SYSTANE [Concomitant]
     Indication: DRY EYE
  5. PLAQUENIL                          /00072601/ [Concomitant]
     Indication: SJOGREN^S SYNDROME
  6. SUDAFED                            /00070002/ [Concomitant]
     Indication: HYPERSENSITIVITY

REACTIONS (5)
  - Instillation site pain [Not Recovered/Not Resolved]
  - Dry eye [Not Recovered/Not Resolved]
  - Ocular hyperaemia [Not Recovered/Not Resolved]
  - Eye irritation [Not Recovered/Not Resolved]
  - Eye irritation [Not Recovered/Not Resolved]
